FAERS Safety Report 21572227 (Version 2)
Quarter: 2022Q4

REPORT INFORMATION
  Report Type: Spontaneous
  Country: CH (occurrence: CH)
  Receive Date: 20221109
  Receipt Date: 20221111
  Transmission Date: 20230112
  Serious: Yes (Death)
  Sender: FDA-Public Use
  Company Number: CH-002147023-NVSC2022CH251908

PATIENT
  Sex: Male

DRUGS (2)
  1. DOCETAXEL [Suspect]
     Active Substance: DOCETAXEL
     Indication: Hormone-refractory prostate cancer
     Dosage: UNK (FROM QUATRE 3)
     Route: 065
     Dates: start: 2022
  2. APALUTAMIDE [Concomitant]
     Active Substance: APALUTAMIDE
     Indication: Hormone-refractory prostate cancer
     Dosage: UNK (FROM QUATRE 3)
     Route: 065
     Dates: start: 2022

REACTIONS (1)
  - Death [Fatal]
